FAERS Safety Report 16070916 (Version 2)
Quarter: 2019Q3

REPORT INFORMATION
  Report Type: Spontaneous
  Country: US (occurrence: US)
  Receive Date: 20190314
  Receipt Date: 20190710
  Transmission Date: 20191004
  Serious: Yes (Hospitalization, Other)
  Sender: FDA-Public Use
  Company Number: US-TORRENT-00007802

PATIENT
  Age: 94 Year
  Sex: Female

DRUGS (3)
  1. NIFEDIPINE. [Concomitant]
     Active Substance: NIFEDIPINE
     Indication: HYPERTENSION
     Dosage: UNKNOWN
  2. LOSARTAN AND HYDROCHLOROTHIAZIDE [Suspect]
     Active Substance: HYDROCHLOROTHIAZIDE\LOSARTAN POTASSIUM
     Indication: PRODUCT USED FOR UNKNOWN INDICATION
     Dosage: WAS ON LOSARTAN SINCE MANY YEARS
     Dates: end: 2018
  3. MEGESTROL [Concomitant]
     Active Substance: MEGESTROL
     Indication: DECREASED APPETITE
     Dosage: UNKNOWN

REACTIONS (6)
  - Aplastic anaemia [Unknown]
  - Renal disorder [Unknown]
  - Pulmonary oedema [Unknown]
  - Hepatic mass [Unknown]
  - Renal impairment [Unknown]
  - Myelodysplastic syndrome [Unknown]
